FAERS Safety Report 8470508-0 (Version None)
Quarter: 2012Q2

REPORT INFORMATION
  Report Type: 
  Country: None (occurrence: None)
  Receive Date: 20120627
  Receipt Date: 20110916
  Transmission Date: 20120825
  Serious: No
  Sender: FDA-Public Use
  Company Number: US-MYLANLABS-2011S1019687

PATIENT
  Age: 87 Year
  Sex: Female

DRUGS (1)
  1. PERFOROMIST [Suspect]
     Indication: LUNG DISORDER
     Route: 055
     Dates: start: 20110905

REACTIONS (1)
  - CONSTIPATION [None]
